FAERS Safety Report 25326335 (Version 1)
Quarter: 2025Q2

REPORT INFORMATION
  Report Type: Report from Study
  Country: GB (occurrence: GB)
  Receive Date: 20250516
  Receipt Date: 20250516
  Transmission Date: 20250717
  Serious: Yes (Other)
  Sender: SANDOZ
  Company Number: GB-002147023-NVSC2021GB139146

PATIENT
  Age: 51 Year
  Sex: Male

DRUGS (2)
  1. ERELZI [Suspect]
     Active Substance: ETANERCEPT-SZZS
     Route: 058
     Dates: start: 201812
  2. ERELZI [Suspect]
     Active Substance: ETANERCEPT-SZZS
     Indication: Psoriatic arthropathy
     Dosage: 50 MG, QW
     Route: 058
     Dates: start: 20210616

REACTIONS (8)
  - Rheumatoid arthritis [Unknown]
  - Sepsis [Unknown]
  - Splinter [Unknown]
  - Localised infection [Unknown]
  - Road traffic accident [Unknown]
  - Skeletal injury [Recovered/Resolved]
  - Face injury [Recovered/Resolved]
  - Product dose omission issue [Unknown]

NARRATIVE: CASE EVENT DATE: 20250509
